FAERS Safety Report 8842413 (Version 2)
Quarter: 2012Q4

REPORT INFORMATION
  Report Type: 
  Country: GB (occurrence: GB)
  Receive Date: 20121016
  Receipt Date: 20121205
  Transmission Date: 20130627
  Serious: Yes (Death, Other)
  Sender: FDA-Public Use
  Company Number: GB-ROCHE-1145804

PATIENT
  Age: 81 Year
  Sex: Female
  Weight: 80 kg

DRUGS (7)
  1. LUCENTIS [Suspect]
     Indication: AGE-RELATED MACULAR DEGENERATION
     Route: 050
  2. LUCENTIS [Suspect]
     Route: 050
     Dates: end: 20120515
  3. ANTIDIABETIC DRUG NOS [Concomitant]
     Route: 065
  4. LEVOTHYROXINE [Concomitant]
     Route: 065
     Dates: start: 20071015
  5. SALBUTAMOL [Concomitant]
     Route: 065
     Dates: start: 20100107
  6. FENTANYL [Concomitant]
     Route: 065
     Dates: start: 20101110
  7. ZOPICLONE [Concomitant]
     Route: 065
     Dates: start: 20120518

REACTIONS (2)
  - Lung neoplasm malignant [Fatal]
  - Forced expiratory volume decreased [Unknown]
